FAERS Safety Report 14420370 (Version 1)
Quarter: 2018Q1

REPORT INFORMATION
  Report Type: Spontaneous
  Country: US (occurrence: US)
  Receive Date: 20180122
  Receipt Date: 20180122
  Transmission Date: 20180509
  Serious: No
  Sender: FDA-Public Use
  Company Number: US-ROCHE-1937940

PATIENT
  Sex: Female

DRUGS (6)
  1. RITUXIMAB. [Suspect]
     Active Substance: RITUXIMAB
     Indication: RHEUMATOID ARTHRITIS
     Route: 065
     Dates: start: 2017
  2. ARAVA [Concomitant]
     Active Substance: LEFLUNOMIDE
  3. XELJANZ [Concomitant]
     Active Substance: TOFACITINIB CITRATE
  4. METHOTREXATE. [Concomitant]
     Active Substance: METHOTREXATE
     Dosage: 5 YEARS
     Route: 065
  5. ENBREL [Concomitant]
     Active Substance: ETANERCEPT
     Route: 065
     Dates: start: 2010
  6. REMICADE [Concomitant]
     Active Substance: INFLIXIMAB
     Route: 065
     Dates: start: 2012

REACTIONS (2)
  - Drug ineffective [Unknown]
  - No adverse event [Unknown]
